FAERS Safety Report 4941020-8 (Version None)
Quarter: 2006Q1

REPORT INFORMATION
  Report Type: 
  Country: None (occurrence: None)
  Receive Date: 20060313
  Receipt Date: 20060302
  Transmission Date: 20060701
  Serious: Yes (Death)
  Sender: FDA-Public Use
  Company Number: GB-JNJFOC-20041007507

PATIENT
  Age: 68 Year
  Sex: Female

DRUGS (2)
  1. INFLIXIMAB [Suspect]
     Indication: RHEUMATOID ARTHRITIS
     Route: 042
  2. LEFLUNOMIDE [Concomitant]

REACTIONS (8)
  - ALVEOLITIS FIBROSING [None]
  - CRYPTOGENIC ORGANIZING PNEUMONIA [None]
  - ESCHERICHIA INFECTION [None]
  - GRANULOMA [None]
  - MULTIFOCAL MICRONODULAR PNEUMOCYTE HYPERPLASIA [None]
  - PULMONARY ALVEOLAR HAEMORRHAGE [None]
  - PULMONARY FIBROSIS [None]
  - RHEUMATOID ARTHRITIS [None]
